FAERS Safety Report 15027964 (Version 2)
Quarter: 2018Q3

REPORT INFORMATION
  Report Type: Spontaneous
  Country: JP (occurrence: JP)
  Receive Date: 20180619
  Receipt Date: 20180713
  Transmission Date: 20181010
  Serious: Yes (Other)
  Sender: FDA-Public Use
  Company Number: JP-TEVA-2018-JP-909327

PATIENT
  Age: 77 Year
  Sex: Female

DRUGS (6)
  1. TRASTUZUMAB. [Suspect]
     Active Substance: TRASTUZUMAB
     Indication: HER-2 POSITIVE GASTRIC CANCER
     Dosage: FIRST DOSE 8 MG/KG
     Route: 065
  2. CAPECITABINE. [Suspect]
     Active Substance: CAPECITABINE
     Dosage: REDUCED BY ONE LEVEL OF DOSAGE; XELOX REGIMEN
     Route: 065
  3. TRASTUZUMAB. [Suspect]
     Active Substance: TRASTUZUMAB
     Dosage: SECOND DOSE ONWARD ? 6 MG/KG ON DAY 1 EVERY THREE WEEKS
     Route: 065
  4. APREPITANT. [Concomitant]
     Active Substance: APREPITANT
     Indication: NAUSEA
     Dosage: ADDED FROM THE SECOND COURSE OF THE CHEMOTHERAPY
     Route: 065
  5. OXALIPLATIN. [Suspect]
     Active Substance: OXALIPLATIN
     Indication: HER-2 POSITIVE GASTRIC CANCER
     Dosage: XELOX REGIMEN; 130 MG/M2 ON DAY 1
     Route: 065
  6. CAPECITABINE. [Suspect]
     Active Substance: CAPECITABINE
     Indication: HER-2 POSITIVE GASTRIC CANCER
     Dosage: XELOX REGIMEN; 2000 MG/M2 ON DAYS 1?14
     Route: 065

REACTIONS (5)
  - Hypophagia [Recovered/Resolved]
  - Decreased appetite [Recovering/Resolving]
  - Weight decreased [Recovering/Resolving]
  - Gastric stenosis [Recovering/Resolving]
  - Scar [Recovering/Resolving]
